FAERS Safety Report 8518769-3 (Version None)
Quarter: 2012Q3

REPORT INFORMATION
  Report Type: 
  Country: None (occurrence: None)
  Receive Date: 20120718
  Receipt Date: 20120713
  Transmission Date: 20120928
  Serious: No
  Sender: FDA-Public Use
  Company Number: PHEH2012US013781

PATIENT
  Sex: Female

DRUGS (11)
  1. LISINOPRIL [Concomitant]
     Dosage: 10 MG, QD
     Route: 048
  2. ATENOLOL [Concomitant]
     Dosage: 25 MG, QD
     Route: 048
  3. SYNERGA [Concomitant]
     Indication: BLOOD CALCIUM
  4. STOMACHIAGIL [Concomitant]
  5. TASIGNA [Suspect]
     Indication: LEUKAEMIA
     Dosage: 200 MG, Q12H
     Route: 048
     Dates: start: 20120709
  6. CALCIUM CARBONATE [Concomitant]
  7. ASPIRIN [Concomitant]
     Dosage: 325 MG, QD
  8. CENTRUM [Concomitant]
  9. LEVOTHYROXINE SODIUM [Concomitant]
  10. REVALID [Concomitant]
  11. FISH OIL [Concomitant]
     Dosage: 1000 MG, BID
     Route: 048

REACTIONS (1)
  - EYE DISORDER [None]
